FAERS Safety Report 14581834 (Version 1)
Quarter: 2018Q1

REPORT INFORMATION
  Report Type: Report from Study
  Country: ES (occurrence: ES)
  Receive Date: 20180228
  Receipt Date: 20180228
  Transmission Date: 20180509
  Serious: Yes (Other)
  Sender: FDA-Public Use
  Company Number: ES-IGSA-SR10005928

PATIENT
  Sex: Female

DRUGS (1)
  1. PROLASTINA (ALPHA1-PROTEINASE INHIBITOR (HUMAN)) [Suspect]
     Active Substance: .ALPHA.1-PROTEINASE INHIBITOR HUMAN
     Indication: ALPHA-1 ANTI-TRYPSIN DEFICIENCY
     Dosage: 360 MG, UNK
     Route: 042

REACTIONS (3)
  - Renal colic [Recovered/Resolved]
  - Pneumonia [Recovered/Resolved]
  - Urinary tract infection [Recovered/Resolved]
